FAERS Safety Report 22774986 (Version 7)
Quarter: 2024Q3

REPORT INFORMATION
  Report Type: Spontaneous
  Country: CA (occurrence: CA)
  Receive Date: 20230802
  Receipt Date: 20240827
  Transmission Date: 20241017
  Serious: Yes (Hospitalization, Other)
  Sender: AUROBINDO
  Company Number: CA-MLMSERVICE-20230712-4380766-1

PATIENT
  Age: 74 Year
  Sex: Female

DRUGS (15)
  1. ARIPIPRAZOLE [Suspect]
     Active Substance: ARIPIPRAZOLE
     Indication: Schizophrenia
     Dosage: 30 MILLIGRAM, ONCE A DAY
     Route: 065
  2. ARIPIPRAZOLE [Suspect]
     Active Substance: ARIPIPRAZOLE
     Indication: Psychotic symptom
     Dosage: 20 MILLIGRAM, ONCE A DAY (DOSE REDUCED)
     Route: 065
  3. OLANZAPINE [Suspect]
     Active Substance: OLANZAPINE
     Indication: Schizophrenia
     Dosage: 15 MILLIGRAM, ONCE A DAY
     Route: 065
  4. CLOZAPINE [Suspect]
     Active Substance: CLOZAPINE
     Indication: Schizophrenia
     Dosage: 150 MILLIGRAM, ONCE A DAY
     Route: 065
  5. CLOZAPINE [Suspect]
     Active Substance: CLOZAPINE
     Dosage: 25 MILLIGRAM, EVERY OTHER DAY (DOSE TITRATED)
     Route: 065
  6. CLOZAPINE [Suspect]
     Active Substance: CLOZAPINE
     Dosage: UNK
     Route: 065
  7. CLOZAPINE [Suspect]
     Active Substance: CLOZAPINE
     Dosage: 100 MILLIGRAM, ONCE A DAY
     Route: 065
  8. CLOZAPINE [Suspect]
     Active Substance: CLOZAPINE
     Dosage: 50 MILLIGRAM, ONCE A DAY
     Route: 065
  9. CLOZAPINE [Suspect]
     Active Substance: CLOZAPINE
     Dosage: UNK
  10. ARIPIPRAZOLE [Concomitant]
     Active Substance: ARIPIPRAZOLE
     Indication: Schizophrenia
     Dosage: 20 MILLIGRAM, ONCE A DAY
     Route: 065
  11. ARIPIPRAZOLE [Concomitant]
     Active Substance: ARIPIPRAZOLE
     Dosage: 30 MILLIGRAM, ONCE A DAY
     Route: 065
  12. ALENDRONATE [Concomitant]
     Active Substance: ALENDRONATE SODIUM
     Indication: Osteoporosis
     Dosage: 70 MILLIGRAM, EVERY WEEK
     Route: 065
  13. MELATONIN [Concomitant]
     Active Substance: MELATONIN
     Indication: Insomnia
     Dosage: 3 MILLIGRAM, ONCE A DAY
     Route: 065
  14. RIVAROXABAN [Concomitant]
     Active Substance: RIVAROXABAN
     Indication: Atrial fibrillation
     Dosage: 20 MILLIGRAM, ONCE A DAY
     Route: 065
  15. SENNOSIDES [Concomitant]
     Active Substance: SENNOSIDES
     Indication: Constipation
     Dosage: 12 MILLIGRAM, TWO TIMES A DAY
     Route: 065

REACTIONS (10)
  - C-reactive protein increased [Not Recovered/Not Resolved]
  - Psychotic symptom [Not Recovered/Not Resolved]
  - Antipsychotic drug level below therapeutic [Unknown]
  - Balance disorder [Recovered/Resolved]
  - Fall [Recovered/Resolved]
  - Leukocytosis [Recovered/Resolved]
  - Myoclonus [Recovered/Resolved]
  - Drug ineffective for unapproved indication [Unknown]
  - Therapeutic response decreased [Recovered/Resolved]
  - Drug ineffective [Recovered/Resolved]
